FAERS Safety Report 8311481-5 (Version None)
Quarter: 2012Q1

REPORT INFORMATION
  Report Type: 
  Country: None (occurrence: None)
  Receive Date: 20120315
  Receipt Date: 20101212
  Transmission Date: 20120608
  Serious: No
  Sender: FDA-Public Use
  Company Number: PHHY2010US85660

PATIENT
  Age: 36 Year
  Sex: Female

DRUGS (2)
  1. GILENYA [Suspect]
     Indication: MULTIPLE SCLEROSIS
     Dosage: 0.5 MG, DAILY, ORAL
     Route: 048
     Dates: start: 20101118
  2. INSULIN (INSULIN) [Concomitant]

REACTIONS (6)
  - VISUAL IMPAIRMENT [None]
  - PYREXIA [None]
  - NASOPHARYNGITIS [None]
  - NIGHT SWEATS [None]
  - COUGH [None]
  - INFLUENZA LIKE ILLNESS [None]
